FAERS Safety Report 25624741 (Version 12)
Quarter: 2025Q4

REPORT INFORMATION
  Report Type: Spontaneous
  Country: EU (occurrence: EU)
  Receive Date: 20250730
  Receipt Date: 20251208
  Transmission Date: 20260118
  Serious: Yes (Hospitalization, Disabling, Other)
  Sender: ASCEND THERAPEUTICS US, LLC
  Company Number: EU-Ascend Therapeutics US, LLC-2181561

PATIENT
  Age: 55 Year
  Sex: Female

DRUGS (2)
  1. ESTROGEL [Suspect]
     Active Substance: ESTRADIOL
     Indication: Product used for unknown indication
     Dates: start: 2009
  2. ESTRADIOL [Suspect]
     Active Substance: ESTRADIOL
     Dates: start: 2009

REACTIONS (26)
  - Meningioma [Recovered/Resolved with Sequelae]
  - Deafness unilateral [Unknown]
  - Dysdiadochokinesis [Unknown]
  - Dysdiadochokinesis [Unknown]
  - Meningioma [Unknown]
  - Narcolepsy [Unknown]
  - Deafness [Unknown]
  - Vestibular disorder [Unknown]
  - Condition aggravated [Unknown]
  - Ear canal injury [Unknown]
  - Sensory disturbance [Unknown]
  - Balance disorder [Unknown]
  - Meniere^s disease [Unknown]
  - Fall [Unknown]
  - Gait disturbance [Unknown]
  - Ear pain [Unknown]
  - Temporomandibular pain and dysfunction syndrome [Unknown]
  - Torticollis [Unknown]
  - Neck pain [Unknown]
  - Scar pain [Unknown]
  - Retrograde amnesia [Unknown]
  - Disability [Not Recovered/Not Resolved]
  - Hypoacusis [Unknown]
  - Tinnitus [Recovered/Resolved]
  - Deafness [Unknown]
  - Meningioma [Unknown]

NARRATIVE: CASE EVENT DATE: 20151201
